FAERS Safety Report 5560102-3 (Version None)
Quarter: 2007Q4

REPORT INFORMATION
  Report Type: 
  Country: None (occurrence: None)
  Receive Date: 20071214
  Receipt Date: 20071023
  Transmission Date: 20080405
  Serious: No
  Sender: FDA-Public Use
  Company Number: US-ABBOTT-07P-163-0422094-00

PATIENT

DRUGS (1)
  1. HUMIRA [Suspect]
     Indication: RHEUMATOID ARTHRITIS
     Dates: start: 20070401

REACTIONS (3)
  - ANTIACETYLCHOLINE RECEPTOR ANTIBODY POSITIVE [None]
  - ASTHENIA [None]
  - NECK PAIN [None]
